FAERS Safety Report 11040155 (Version 2)
Quarter: 2015Q2

REPORT INFORMATION
  Report Type: Spontaneous
  Country: US (occurrence: US)
  Receive Date: 20150416
  Receipt Date: 20150525
  Transmission Date: 20150821
  Serious: Yes (Other)
  Sender: FDA-Public Use
  Company Number: US-JNJFOC-20140720498

PATIENT
  Age: 73 Year
  Sex: Male

DRUGS (8)
  1. METOLAZONE. [Concomitant]
     Active Substance: METOLAZONE
     Route: 065
  2. XARELTO [Suspect]
     Active Substance: RIVAROXABAN
     Indication: CEREBROVASCULAR ACCIDENT PROPHYLAXIS
     Route: 048
  3. LASIX [Concomitant]
     Active Substance: FUROSEMIDE
     Route: 065
  4. KCL [Concomitant]
     Active Substance: POTASSIUM CHLORIDE
     Route: 065
  5. XARELTO [Suspect]
     Active Substance: RIVAROXABAN
     Indication: ATRIAL FIBRILLATION
     Route: 048
  6. AMIODARONE [Concomitant]
     Active Substance: AMIODARONE
     Route: 065
  7. ASPIRIN. [Suspect]
     Active Substance: ASPIRIN
     Indication: PRODUCT USED FOR UNKNOWN INDICATION
     Route: 065
  8. COREG [Concomitant]
     Active Substance: CARVEDILOL
     Route: 065

REACTIONS (1)
  - Haemoptysis [Unknown]
